FAERS Safety Report 9326044 (Version 1)
Quarter: 2013Q2

REPORT INFORMATION
  Report Type: Spontaneous
  Country: US (occurrence: None)
  Receive Date: 20130603
  Receipt Date: 20130603
  Transmission Date: 20140414
  Serious: Yes (Other)
  Sender: FDA-Public Use
  Company Number: None

PATIENT
  Age: 52 Year
  Sex: Female
  Weight: 81.65 kg

DRUGS (2)
  1. AMPHETAMINE SALTS ER 20MG [Suspect]
     Dosage: 2 PILLS
     Route: 048
     Dates: start: 20130212, end: 20130430
  2. AMPHETAMINE SALTS ER 20MG [Suspect]
     Dosage: 2 PILLS
     Route: 048
     Dates: start: 20130212, end: 20130430

REACTIONS (9)
  - Fatigue [None]
  - Drug effect decreased [None]
  - Cardiac disorder [None]
  - Headache [None]
  - Pain in jaw [None]
  - Musculoskeletal pain [None]
  - Pain in extremity [None]
  - Hypoaesthesia [None]
  - Product substitution issue [None]
